FAERS Safety Report 11141887 (Version 1)
Quarter: 2015Q2

REPORT INFORMATION
  Report Type: Spontaneous
  Country: US (occurrence: US)
  Receive Date: 20150527
  Receipt Date: 20150527
  Transmission Date: 20150821
  Serious: Yes (Hospitalization, Other)
  Sender: FDA-Public Use
  Company Number: US-VIVUS-2015V1000218

PATIENT
  Age: 56 Year
  Sex: Male
  Weight: 92.62 kg

DRUGS (9)
  1. QSYMIA [Suspect]
     Active Substance: PHENTERMINE HYDROCHLORIDE\TOPIRAMATE
     Indication: WEIGHT DECREASED
     Route: 048
     Dates: start: 2014, end: 201408
  2. QSYMIA [Suspect]
     Active Substance: PHENTERMINE HYDROCHLORIDE\TOPIRAMATE
     Route: 048
     Dates: start: 201503, end: 201505
  3. QSYMIA [Suspect]
     Active Substance: PHENTERMINE HYDROCHLORIDE\TOPIRAMATE
     Indication: WEIGHT DECREASED
     Route: 048
     Dates: start: 20150511
  4. CLONAZEPAM. [Concomitant]
     Active Substance: CLONAZEPAM
     Indication: PHARYNGEAL DISORDER
     Route: 048
  5. TRAZODONE [Concomitant]
     Active Substance: TRAZODONE HYDROCHLORIDE
     Indication: SLEEP DISORDER
  6. ARMOUR THYROID [Concomitant]
     Active Substance: THYROID, PORCINE\THYROID, UNSPECIFIED
     Indication: PRODUCT USED FOR UNKNOWN INDICATION
     Route: 048
  7. QSYMIA [Suspect]
     Active Substance: PHENTERMINE HYDROCHLORIDE\TOPIRAMATE
     Indication: WEIGHT DECREASED
     Route: 048
     Dates: start: 201402, end: 2014
  8. TRAZODONE [Concomitant]
     Active Substance: TRAZODONE HYDROCHLORIDE
     Indication: DEPRESSION
     Route: 048
     Dates: start: 2012
  9. PRILOSEC [Concomitant]
     Active Substance: OMEPRAZOLE MAGNESIUM
     Indication: PHARYNGEAL DISORDER
     Route: 048
     Dates: start: 201411

REACTIONS (3)
  - Road traffic accident [Recovered/Resolved]
  - Pericardial cyst [Recovered/Resolved]
  - Vocal cord disorder [Recovered/Resolved]

NARRATIVE: CASE EVENT DATE: 201408
